FAERS Safety Report 14404409 (Version 2)
Quarter: 2018Q3

REPORT INFORMATION
  Report Type: Other
  Country: None (occurrence: TH)
  Receive Date: 20180117
  Receipt Date: 20180726
  Transmission Date: 20181010
  Serious: Yes (Other)
  Sender: FDA-Public Use
  Company Number: TH-POPULATION COUNCIL, INC.-2040239

PATIENT
  Sex: Female

DRUGS (1)
  1. JADELLE [Suspect]
     Active Substance: LEVONORGESTREL
     Indication: CONTRACEPTION
     Route: 058
     Dates: start: 20170629

REACTIONS (2)
  - Pregnancy with implant contraceptive [None]
  - Drug ineffective [None]

NARRATIVE: CASE EVENT DATE: 2017
